FAERS Safety Report 8563753 (Version 3)
Quarter: 2012Q4

REPORT INFORMATION
  Report Type: 
  Country: CZ (occurrence: CZ)
  Receive Date: 20120515
  Receipt Date: 20120912
  Transmission Date: 20130627
  Serious: Yes (Hospitalization)
  Sender: FDA-Public Use
  Company Number: CZ-PFIZER INC-2012113940

PATIENT
  Age: 43 Year
  Sex: Female

DRUGS (5)
  1. SALAZOPYRINE [Suspect]
     Dosage: 500 mg, 1x/day
     Route: 048
     Dates: start: 20120321, end: 20120322
  2. SURGAM [Concomitant]
  3. NEOTIGASON [Concomitant]
  4. MEDROL [Concomitant]
  5. MINERVA [Concomitant]

REACTIONS (2)
  - Acute generalised exanthematous pustulosis [Unknown]
  - Chills [Unknown]
